FAERS Safety Report 4689086-7 (Version None)
Quarter: 2005Q2

REPORT INFORMATION
  Report Type: 
  Country: None (occurrence: None)
  Receive Date: 20050613
  Receipt Date: 20050613
  Transmission Date: 20051028
  Serious: Yes (Hospitalization)
  Sender: FDA-Public Use
  Company Number: None

PATIENT
  Age: 37 Year
  Sex: Male

DRUGS (5)
  1. I-131 [Suspect]
     Indication: RADIOFREQUENCY ABLATION
     Dosage: 10 MCI 1 UNKNOWN
     Route: 065
  2. I-131 [Suspect]
     Indication: THYROID DISORDER
     Dosage: 10 MCI 1 UNKNOWN
     Route: 065
  3. CARBIMAZOLE [Concomitant]
  4. PROPRONALOL [Concomitant]
  5. RADIOIODINE [Concomitant]

REACTIONS (2)
  - AREFLEXIA [None]
  - PARALYSIS [None]
